FAERS Safety Report 5223762-2 (Version None)
Quarter: 2007Q1

REPORT INFORMATION
  Report Type: 
  Country: None (occurrence: None)
  Receive Date: 20070130
  Receipt Date: 20070119
  Transmission Date: 20070707
  Serious: Yes (Hospitalization, Other)
  Sender: FDA-Public Use
  Company Number: GB-JNJFOC-20070105460

PATIENT
  Sex: Male
  Weight: 74 kg

DRUGS (7)
  1. REMICADE [Suspect]
     Indication: RHEUMATOID ARTHRITIS
     Route: 042
  2. METHOTREXATE [Concomitant]
  3. PREDNISOLONE [Concomitant]
  4. CELECOXIB [Concomitant]
  5. COD LIVER OIL [Concomitant]
  6. CO-PROXAMOL [Concomitant]
  7. FOSAMAX [Concomitant]

REACTIONS (1)
  - CORONARY ARTERY BYPASS [None]
